FAERS Safety Report 15593404 (Version 1)
Quarter: 2018Q4

REPORT INFORMATION
  Report Type: Spontaneous
  Country: US (occurrence: US)
  Receive Date: 20181107
  Receipt Date: 20181107
  Transmission Date: 20190205
  Serious: Yes (Other)
  Sender: FDA-Public Use
  Company Number: None

PATIENT
  Age: 70 Year
  Sex: Female
  Weight: 90.45 kg

DRUGS (12)
  1. OMEPRAZOLE. [Concomitant]
     Active Substance: OMEPRAZOLE
  2. ARIMIDEX [Concomitant]
     Active Substance: ANASTROZOLE
  3. PAROXETINE. [Concomitant]
     Active Substance: PAROXETINE
  4. GENTAMICIN. [Concomitant]
     Active Substance: GENTAMICIN
  5. VITAMIN D2 [Concomitant]
     Active Substance: ERGOCALCIFEROL
  6. PROLENSA [Concomitant]
     Active Substance: BROMFENAC SODIUM
  7. CYANOCOBALAMIN. [Concomitant]
     Active Substance: CYANOCOBALAMIN
  8. LOTEMAX [Concomitant]
     Active Substance: LOTEPREDNOL ETABONATE
  9. METOPROLOL. [Concomitant]
     Active Substance: METOPROLOL
  10. RANITIDINE. [Concomitant]
     Active Substance: RANITIDINE
  11. NERLYNX [Suspect]
     Active Substance: NERATINIB
     Indication: BREAST CANCER
     Route: 048
     Dates: start: 20181011
  12. CALCIUM CITRATE + D [Concomitant]

REACTIONS (3)
  - Heart rate increased [None]
  - Dyspnoea [None]
  - Fatigue [None]

NARRATIVE: CASE EVENT DATE: 20181107
